FAERS Safety Report 12312450 (Version 9)
Quarter: 2018Q2

REPORT INFORMATION
  Report Type: Report from Study
  Country: BR (occurrence: BR)
  Receive Date: 20160428
  Receipt Date: 20180523
  Transmission Date: 20180711
  Serious: Yes (Hospitalization, Other)
  Sender: FDA-Public Use
  Company Number: BR-ROCHE-1747512

PATIENT
  Sex: Female
  Weight: 27.5 kg

DRUGS (13)
  1. CIPROFLOXACIN. [Concomitant]
     Active Substance: CIPROFLOXACIN
     Route: 065
  2. FUROSEMIDE. [Concomitant]
     Active Substance: FUROSEMIDE
     Indication: CARDIAC DISORDER
     Dosage: HALF AT MORNING HALF AT AFTERNOON
     Route: 065
  3. CIPROFLOXACIN. [Concomitant]
     Active Substance: CIPROFLOXACIN
     Indication: CYSTIC FIBROSIS
     Dosage: HALF TABLET
     Route: 065
  4. SPIRONOLACTONE. [Concomitant]
     Active Substance: SPIRONOLACTONE
  5. PULMOZYME [Suspect]
     Active Substance: DORNASE ALFA
     Indication: CYSTIC FIBROSIS
     Route: 065
     Dates: start: 200812
  6. SALBUTAMOL [Concomitant]
     Active Substance: ALBUTEROL
     Indication: CYSTIC FIBROSIS
     Dosage: SPRAY
     Route: 065
  7. CARVEDILOL. [Concomitant]
     Active Substance: CARVEDILOL
  8. OMEPRAZOLE. [Concomitant]
     Active Substance: OMEPRAZOLE
  9. COLISTIMETHATE [Concomitant]
     Active Substance: COLISTIMETHATE SODIUM
  10. SILDENAFIL. [Concomitant]
     Active Substance: SILDENAFIL
     Indication: PULMONARY HYPERTENSION
  11. TOBRAMYCIN. [Concomitant]
     Active Substance: TOBRAMYCIN
  12. AMIKACIN. [Concomitant]
     Active Substance: AMIKACIN
     Indication: CYSTIC FIBROSIS
     Route: 065
  13. AZITHROMYCIN ANHYDROUS. [Concomitant]
     Active Substance: AZITHROMYCIN ANHYDROUS
     Indication: CYSTIC FIBROSIS
     Dosage: HALF TABLET
     Route: 065

REACTIONS (18)
  - Pyrexia [Unknown]
  - Pulmonary function test decreased [Recovering/Resolving]
  - Cough [Recovering/Resolving]
  - Mycobacterial disease carrier [Not Recovered/Not Resolved]
  - Skin disorder [Unknown]
  - Weight decreased [Recovered/Resolved]
  - Catarrh [Unknown]
  - Increased bronchial secretion [Recovered/Resolved]
  - Incorrect dose administered [Unknown]
  - Dysphonia [Unknown]
  - Cough [Unknown]
  - Drug ineffective [Unknown]
  - Bacterial infection [Recovering/Resolving]
  - Vomiting [Recovered/Resolved]
  - Cystic fibrosis [Recovering/Resolving]
  - Tachypnoea [Recovered/Resolved]
  - Pseudomonas infection [Recovering/Resolving]
  - Pyrexia [Recovered/Resolved]

NARRATIVE: CASE EVENT DATE: 2016
